FAERS Safety Report 23331031 (Version 1)
Quarter: 2023Q4

REPORT INFORMATION
  Report Type: Spontaneous
  Country: US (occurrence: US)
  Receive Date: 20231222
  Receipt Date: 20231222
  Transmission Date: 20240110
  Serious: Yes (Other)
  Sender: FDA-Public Use
  Company Number: US-Vifor (International) Inc.-VIT-2023-10278

PATIENT
  Age: 50 Year
  Sex: Male
  Weight: 150 kg

DRUGS (1)
  1. MIRCERA [Suspect]
     Active Substance: METHOXY POLYETHYLENE GLYCOL-EPOETIN BETA
     Indication: Nephrogenic anaemia
     Route: 040
     Dates: start: 20231214, end: 20231214

REACTIONS (9)
  - Drug hypersensitivity [Unknown]
  - Flushing [Unknown]
  - Dyspnoea [Unknown]
  - Dysphagia [Unknown]
  - Feeling hot [Unknown]
  - Paraesthesia [Unknown]
  - Nausea [Unknown]
  - Dysphonia [Unknown]
  - Blood pressure increased [Unknown]

NARRATIVE: CASE EVENT DATE: 20231214
